FAERS Safety Report 8537547-2 (Version None)
Quarter: 2012Q3

REPORT INFORMATION
  Report Type: 
  Country: None (occurrence: None)
  Receive Date: 20120725
  Receipt Date: 20120718
  Transmission Date: 20120928
  Serious: Yes (Hospitalization)
  Sender: FDA-Public Use
  Company Number: US-US-EMD SERONO, INC.-7148906

PATIENT
  Sex: Female
  Weight: 72 kg

DRUGS (4)
  1. REBIF [Suspect]
     Indication: MULTIPLE SCLEROSIS
     Route: 058
     Dates: start: 20100718
  2. PRILOSEC [Concomitant]
     Indication: REFLUX GASTRITIS
  3. LISINOPRIL [Concomitant]
     Indication: HYPERTENSION
  4. MELOXICAM [Suspect]
     Indication: PAIN IN EXTREMITY
     Dosage: FOUR OR FIVE YEARS
     Dates: end: 20120101

REACTIONS (2)
  - GASTRIC ULCER HAEMORRHAGE [None]
  - MULTIPLE SCLEROSIS RELAPSE [None]
